FAERS Safety Report 20708536 (Version 1)
Quarter: 2022Q2

REPORT INFORMATION
  Report Type: Spontaneous
  Country: FR (occurrence: FR)
  Receive Date: 20220414
  Receipt Date: 20220414
  Transmission Date: 20220721
  Serious: Yes (Other)
  Sender: FDA-Public Use
  Company Number: FR-AFSSAPS-BS20220754

PATIENT
  Age: 83 Year
  Sex: Female
  Weight: 72 kg

DRUGS (3)
  1. FUROSEMIDE [Suspect]
     Active Substance: FUROSEMIDE
     Indication: Oedema
     Dosage: 80 MILLIGRAM, ONCE A DAY
     Route: 048
     Dates: start: 20211230, end: 20220104
  2. METFORMIN HYDROCHLORIDE [Suspect]
     Active Substance: METFORMIN HYDROCHLORIDE
     Indication: Diabetes mellitus
     Dosage: 500 MILLIGRAM, ONCE A DAY
     Route: 048
     Dates: start: 20211230, end: 20220103
  3. PREGABALIN [Suspect]
     Active Substance: PREGABALIN
     Indication: Pain
     Dosage: 25 MILLIGRAM, ONCE A DAY
     Route: 048
     Dates: start: 20211231, end: 20220102

REACTIONS (1)
  - Agranulocytosis [Recovered/Resolved]

NARRATIVE: CASE EVENT DATE: 20220103
